FAERS Safety Report 8201992-5 (Version None)
Quarter: 2012Q1

REPORT INFORMATION
  Report Type: 
  Country: None (occurrence: None)
  Receive Date: 20120312
  Receipt Date: 20120305
  Transmission Date: 20120608
  Serious: Yes (Other)
  Sender: FDA-Public Use
  Company Number: PHEH2012US004306

PATIENT
  Sex: Female
  Weight: 49.887 kg

DRUGS (1)
  1. GILENYA [Suspect]
     Indication: MULTIPLE SCLEROSIS
     Dosage: 0.5 MG, QD
     Route: 048
     Dates: start: 20120214, end: 20120217

REACTIONS (4)
  - FATIGUE [None]
  - DIZZINESS [None]
  - BLOOD PRESSURE DECREASED [None]
  - HEART RATE DECREASED [None]
